FAERS Safety Report 18467926 (Version 1)
Quarter: 2020Q4

REPORT INFORMATION
  Report Type: Spontaneous
  Country: US (occurrence: US)
  Receive Date: 20201104
  Receipt Date: 20201104
  Transmission Date: 20210114
  Serious: No
  Sender: FDA-Public Use
  Company Number: None

PATIENT
  Age: 63 Year
  Sex: Male
  Weight: 96 kg

DRUGS (1)
  1. CEFTAZIDIME (CEFTAZIDIME 2GM/BAG INJ) [Suspect]
     Active Substance: CEFTAZIDIME
     Indication: OSTEOMYELITIS
     Route: 042
     Dates: start: 20200915, end: 20201013

REACTIONS (1)
  - Urticaria [None]

NARRATIVE: CASE EVENT DATE: 20201013
